FAERS Safety Report 9727978 (Version 2)
Quarter: 2013Q4

REPORT INFORMATION
  Report Type: Spontaneous
  Country: US (occurrence: US)
  Receive Date: 20131204
  Receipt Date: 20131204
  Transmission Date: 20140711
  Serious: Yes (Other)
  Sender: FDA-Public Use
  Company Number: US-BEH-2012033067

PATIENT
  Age: 7 Year
  Sex: Male

DRUGS (17)
  1. HIZENTRA [Suspect]
     Indication: IMMUNODEFICIENCY COMMON VARIABLE
     Dosage: MONDAYS; IN 2 SITES USING 300 MM TUBING OVER 1 HOUR IN LEFT LEG (THIGH) AND ABDOMEN
     Route: 058
     Dates: start: 20120806, end: 20120806
  2. HIZENTRA [Suspect]
     Dosage: ??-AUG-2012
     Route: 058
  3. HIZENTRA [Suspect]
     Route: 058
     Dates: start: 20131021
  4. HIZENTRA [Suspect]
     Dosage: IN 2 SITES
     Route: 058
     Dates: start: 20131030
  5. HIZENTRA [Suspect]
     Dosage: IN 2 SITES
     Route: 058
     Dates: start: 20131030
  6. HIZENTRA [Suspect]
     Route: 058
  7. TYLENOL [Concomitant]
     Indication: PREMEDICATION
     Dosage: 320 MG (10 ML)
     Route: 048
  8. TYLENOL [Concomitant]
  9. BENADRYL [Concomitant]
     Indication: PREMEDICATION
     Dosage: 1 1/2 TSP (18.5 MG)
     Route: 048
  10. BENADRYL [Concomitant]
  11. ZYRTEC [Concomitant]
  12. SINGULAIR [Concomitant]
  13. PRILOSEC [Concomitant]
  14. PULMICORT [Concomitant]
  15. ALBUTEROL [Concomitant]
  16. CULTURELLE [Concomitant]
  17. EPIPEN [Concomitant]

REACTIONS (9)
  - Infusion site cellulitis [Recovered/Resolved]
  - Arthralgia [Unknown]
  - Headache [Unknown]
  - Pyrexia [Recovered/Resolved]
  - Flatulence [Unknown]
  - Abdominal distension [Unknown]
  - Abdominal pain [Unknown]
  - Infusion site swelling [Recovered/Resolved]
  - Infusion site swelling [Unknown]
